FAERS Safety Report 9376304 (Version 1)
Quarter: 2013Q3

REPORT INFORMATION
  Report Type: Spontaneous
  Country: JP (occurrence: JP)
  Receive Date: 20130701
  Receipt Date: 20130701
  Transmission Date: 20140515
  Serious: Yes (Hospitalization)
  Sender: FDA-Public Use
  Company Number: PHHY2013JP065217

PATIENT
  Age: 71 Year
  Sex: Female

DRUGS (1)
  1. MEXILETINE [Suspect]
     Indication: ARRHYTHMIA

REACTIONS (16)
  - Drug reaction with eosinophilia and systemic symptoms [Unknown]
  - Rash [Unknown]
  - Rash maculo-papular [Unknown]
  - Periorbital oedema [Unknown]
  - Face oedema [Unknown]
  - Rash pustular [Unknown]
  - Pyrexia [Unknown]
  - Oedema [Unknown]
  - Fatigue [Unknown]
  - Mucosal erosion [Unknown]
  - Lymphadenopathy [Unknown]
  - Hyperglycaemia [Unknown]
  - Lymphocytic infiltration [Unknown]
  - Fulminant type 1 diabetes mellitus [Unknown]
  - Autoimmune thyroiditis [Unknown]
  - Human herpes virus 6 serology positive [Unknown]
